FAERS Safety Report 8641691 (Version 2)
Quarter: 2012Q4

REPORT INFORMATION
  Report Type: Report from Study
  Country: DE (occurrence: DE)
  Receive Date: 20120628
  Receipt Date: 20121112
  Transmission Date: 20130627
  Serious: Yes (Other)
  Sender: FDA-Public Use
  Company Number: DE-ABBOTT-12P-062-0948459-00

PATIENT
  Age: 43 Year
  Sex: Female
  Weight: 77 kg

DRUGS (9)
  1. PARICALCITOL [Suspect]
     Indication: HYPERPARATHYROIDISM SECONDARY
     Route: 048
     Dates: start: 20100514
  2. CHOLECALCIFEROL [Concomitant]
     Indication: HYPERPARATHYROIDISM SECONDARY
     Dates: end: 201009
  3. RANITIDIN [Concomitant]
     Indication: PRODUCT USED FOR UNKNOWN INDICATION
     Dosage: 150 mg daily
  4. RAMIPRIL [Concomitant]
     Indication: PRODUCT USED FOR UNKNOWN INDICATION
  5. FUROSEMID [Concomitant]
     Indication: PRODUCT USED FOR UNKNOWN INDICATION
     Dosage: 20 mg daily
  6. AMLODIPIN [Concomitant]
     Indication: PRODUCT USED FOR UNKNOWN INDICATION
     Dosage: 5 mg daily
  7. SPIRONOLACTON [Concomitant]
     Indication: PRODUCT USED FOR UNKNOWN INDICATION
     Dosage: 50 mg daily
  8. INEGY [Concomitant]
     Indication: PRODUCT USED FOR UNKNOWN INDICATION
     Dosage: Once daily
  9. OMEGA 3 FATTY ACIDS [Concomitant]
     Indication: PRODUCT USED FOR UNKNOWN INDICATION

REACTIONS (7)
  - Postoperative renal failure [Recovered/Resolved]
  - Tonsillectomy [Recovered/Resolved]
  - Infection [Unknown]
  - C-reactive protein abnormal [Unknown]
  - Proteinuria [Unknown]
  - Creatine urine abnormal [Unknown]
  - Renal failure acute [Unknown]
